FAERS Safety Report 4668929-7 (Version None)
Quarter: 2005Q2

REPORT INFORMATION
  Report Type: 
  Country: None (occurrence: None)
  Receive Date: 20050523
  Receipt Date: 20040712
  Transmission Date: 20051028
  Serious: Yes (Other)
  Sender: FDA-Public Use
  Company Number: PHBS2004GR09360

PATIENT
  Age: 56 Year
  Sex: Female

DRUGS (4)
  1. ZOMETA [Suspect]
     Indication: METASTASES TO BONE
     Dosage: 4 MG, TIW
  2. ZOMETA [Suspect]
     Dosage: 4 MG, QMO
  3. AROMASIN [Concomitant]
  4. CALCIORAL [Concomitant]

REACTIONS (4)
  - IMPAIRED HEALING [None]
  - OSTEONECROSIS [None]
  - TOOTH DISORDER [None]
  - TOOTH EXTRACTION [None]
